FAERS Safety Report 6137877-8 (Version None)
Quarter: 2009Q1

REPORT INFORMATION
  Report Type: 
  Country: None (occurrence: None)
  Receive Date: 20090331
  Receipt Date: 20090325
  Transmission Date: 20090719
  Serious: Yes (Other)
  Sender: FDA-Public Use
  Company Number: PHHY2009JP11128

PATIENT
  Age: 65 Year
  Sex: Female

DRUGS (3)
  1. ZOMETA [Suspect]
     Indication: METASTASES TO BONE
     Dosage: UNK
     Route: 042
     Dates: start: 20060713, end: 20070705
  2. AREDIA [Suspect]
     Indication: METASTASES TO BONE
     Dosage: UNK
     Route: 042
     Dates: start: 20051013, end: 20060608
  3. ALENDRONATE SODIUM [Suspect]
     Indication: METASTASES TO BONE
     Dosage: UNK
     Route: 042
     Dates: start: 20041007, end: 20041007

REACTIONS (8)
  - BONE DISORDER [None]
  - INCISIONAL DRAINAGE [None]
  - OSTEONECROSIS [None]
  - PAIN [None]
  - PURULENT DISCHARGE [None]
  - SEQUESTRECTOMY [None]
  - SWELLING [None]
  - TOOTH EXTRACTION [None]
